FAERS Safety Report 10194228 (Version 2)
Quarter: 2014Q2

REPORT INFORMATION
  Report Type: Spontaneous
  Country: NL (occurrence: NL)
  Receive Date: 20140525
  Receipt Date: 20140525
  Transmission Date: 20141212
  Serious: Yes (Life-Threatening)
  Sender: FDA-Public Use
  Company Number: NL-009507513-1405NLD010941

PATIENT
  Age: 18 Year
  Sex: Male
  Weight: 76 kg

DRUGS (6)
  1. MIRTAZAPINE ORODISPERGEERBARE TABLETTEN [Suspect]
     Indication: DEPRESSION
     Dosage: 1 TIME A DAY 1 UNIT(S), MELT TABLET
     Route: 048
     Dates: start: 201312
  2. FLUOXETINE [Interacting]
     Indication: DEPRESSION
     Dosage: 1 TIME A DAY 1 UNIT(S)
     Route: 048
     Dates: start: 201402
  3. PAROXETINE HYDROCHLORIDE [Interacting]
     Indication: DEPRESSION
     Dosage: 1 TIME A DAY 1 UNIT(S); (HCL 0.5 H2O)
     Route: 048
     Dates: start: 201311
  4. SEROQUEL [Interacting]
     Indication: SLEEP DISORDER
     Dosage: 1 TIME A DAY 2 UNIT(S)
     Route: 048
     Dates: start: 201312
  5. SEROQUEL XR [Interacting]
     Indication: PRODUCT USED FOR UNKNOWN INDICATION
     Dosage: SEROQUEL XR TABLET MVA 50MG ,1 TIME A DAY 1 UNIT(S)
     Route: 048
     Dates: start: 201312
  6. LORAZEPAM [Interacting]
     Indication: SLEEP DISORDER
     Dosage: INCIDENTAL 1 MG
     Route: 048
     Dates: start: 201312

REACTIONS (2)
  - Drug interaction [Not Recovered/Not Resolved]
  - Aggression [Not Recovered/Not Resolved]
